FAERS Safety Report 19451208 (Version 1)
Quarter: 2021Q2

REPORT INFORMATION
  Report Type: Spontaneous
  Country: US (occurrence: US)
  Receive Date: 20210622
  Receipt Date: 20210622
  Transmission Date: 20210717
  Serious: Yes (Life-Threatening)
  Sender: FDA-Public Use
  Company Number: None

PATIENT
  Age: 40 Year
  Sex: Female
  Weight: 85.5 kg

DRUGS (7)
  1. CYTOMEL [Concomitant]
     Active Substance: LIOTHYRONINE SODIUM
  2. NORDITROPIN [Concomitant]
     Active Substance: SOMATROPIN
  3. VITAMINS [Concomitant]
     Active Substance: VITAMINS
  4. CORTEF [Suspect]
     Active Substance: HYDROCORTISONE
     Indication: ADDISON^S DISEASE
     Dosage: ?          QUANTITY:40 TABLET(S);?
     Route: 048
     Dates: start: 20210614, end: 20210622
  5. SYNTHROID [Concomitant]
     Active Substance: LEVOTHYROXINE SODIUM
  6. PREMPRO [Concomitant]
     Active Substance: ESTROGENS, CONJUGATED\MEDROXYPROGESTERONE ACETATE
  7. CORTEF [Concomitant]
     Active Substance: HYDROCORTISONE

REACTIONS (11)
  - Depression [None]
  - Palpitations [None]
  - Product substitution issue [None]
  - Insurance issue [None]
  - Nausea [None]
  - Adrenocortical insufficiency acute [None]
  - Hyperhidrosis [None]
  - Asthenia [None]
  - Back pain [None]
  - Fatigue [None]
  - Dizziness [None]

NARRATIVE: CASE EVENT DATE: 20210622
